FAERS Safety Report 17917078 (Version 8)
Quarter: 2021Q1

REPORT INFORMATION
  Report Type: Spontaneous
  Country: US (occurrence: US)
  Receive Date: 20200619
  Receipt Date: 20210121
  Transmission Date: 20210419
  Serious: Yes (Other)
  Sender: FDA-Public Use
  Company Number: US-GLAXOSMITHKLINE-US2020AMR103271

PATIENT
  Sex: Female

DRUGS (8)
  1. ZEJULA [Suspect]
     Active Substance: NIRAPARIB
     Dosage: 200 MG, QD
     Route: 048
  2. ZEJULA [Suspect]
     Active Substance: NIRAPARIB
     Indication: OVARIAN CANCER
     Dosage: 1 DF, WE(1 CAPSULE X 1 WEEK)
     Route: 065
     Dates: start: 20200604
  3. CARVEDILOL. [Concomitant]
     Active Substance: CARVEDILOL
     Indication: HEART RATE INCREASED
     Dosage: UNK
  4. ZEJULA [Suspect]
     Active Substance: NIRAPARIB
     Dosage: 200 MG, QD, IN THE PM WITH FOOD
     Route: 065
  5. ZEJULA [Suspect]
     Active Substance: NIRAPARIB
     Dosage: UNK (100 MG 4 DAYS A WEEK ALTERNATING WITH 200 MG 3 DAYS A WEEK)
  6. ZEJULA [Suspect]
     Active Substance: NIRAPARIB
     Dosage: UNK 100MG TUES, THURS, SAT, SUN AND 200MG MON, WED, FRI
  7. SPIRONOLACTONE. [Suspect]
     Active Substance: SPIRONOLACTONE
     Indication: PRODUCT USED FOR UNKNOWN INDICATION
     Dosage: UNK
     Route: 065
  8. ZEJULA [Suspect]
     Active Substance: NIRAPARIB
     Dosage: 200 MG, QD
     Route: 065

REACTIONS (19)
  - Neuropathy peripheral [Unknown]
  - Myalgia [Unknown]
  - Pain in extremity [Unknown]
  - Heart rate increased [Unknown]
  - Nausea [Unknown]
  - Palpitations [Unknown]
  - Haemoglobin decreased [Unknown]
  - Arthralgia [Not Recovered/Not Resolved]
  - Diarrhoea [Recovered/Resolved]
  - Musculoskeletal discomfort [Unknown]
  - Proctalgia [Unknown]
  - Dizziness [Unknown]
  - Paraesthesia [Unknown]
  - Increased appetite [Unknown]
  - Memory impairment [Unknown]
  - Anorectal discomfort [Unknown]
  - Off label use [Unknown]
  - Product use issue [Unknown]
  - Carbohydrate antigen 125 increased [Not Recovered/Not Resolved]
